FAERS Safety Report 20531609 (Version 1)
Quarter: 2022Q1

REPORT INFORMATION
  Report Type: Spontaneous
  Country: US (occurrence: None)
  Receive Date: 20220228
  Receipt Date: 20220228
  Transmission Date: 20220423
  Serious: Yes (Life-Threatening, Disabling)
  Sender: FDA-Public Use
  Company Number: None

PATIENT
  Age: 22 Month
  Sex: Male
  Weight: 13.1 kg

DRUGS (7)
  1. ODEVIXIBAT [Suspect]
     Active Substance: ODEVIXIBAT
     Indication: Progressive familial intrahepatic cholestasis
     Dosage: FREQUENCY : DAILY;?
     Route: 048
     Dates: start: 20210922
  2. cholecalciferol 10mcg/mL oral Liqd [Concomitant]
     Dates: start: 20211006
  3. Multivitamin Complete Fromulation 45mg/0.5mL oral soln [Concomitant]
     Dates: start: 20210727
  4. DEKAs Plus 1 oral LIQD [Concomitant]
     Dates: start: 20210727
  5. Rifampin 25mg/mL oral suspension [Concomitant]
     Dates: start: 20210727
  6. Ursodiol 60mg/mL oral suspension [Concomitant]
     Dates: start: 20201028
  7. Vitamin E 50.25mg/mL (75UT/ML) oral Liqd [Concomitant]
     Dates: start: 20211123

REACTIONS (2)
  - Alpha 1 foetoprotein increased [None]
  - Hepatocellular carcinoma [None]

NARRATIVE: CASE EVENT DATE: 20220211
